FAERS Safety Report 6401480-2 (Version None)
Quarter: 2009Q4

REPORT INFORMATION
  Report Type: 
  Country: None (occurrence: None)
  Receive Date: 20091015
  Receipt Date: 20070904
  Transmission Date: 20100525
  Serious: Yes (Disabling)
  Sender: FDA-Public Use
  Company Number: US-ASTRAZENECA-2006UW10750

PATIENT
  Sex: Female
  Weight: 101.2 kg

DRUGS (6)
  1. SEROQUEL [Suspect]
     Dosage: 25-100MG
     Route: 048
     Dates: start: 20020111
  2. PREVACID [Concomitant]
     Dosage: 15-30MG
     Dates: start: 19991022
  3. TRAZODONE [Concomitant]
     Dates: start: 20010201
  4. LIPITOR [Concomitant]
     Dosage: 10-20MG
     Dates: start: 20021126
  5. RISPERDAL [Concomitant]
     Route: 048
     Dates: start: 19980427
  6. ZYPREXA [Concomitant]
     Dosage: 5-20MG
     Dates: start: 19991013

REACTIONS (1)
  - ILL-DEFINED DISORDER [None]
